FAERS Safety Report 24867380 (Version 1)
Quarter: 2025Q1

REPORT INFORMATION
  Report Type: Spontaneous
  Country: CN (occurrence: CN)
  Receive Date: 20250121
  Receipt Date: 20250121
  Transmission Date: 20250409
  Serious: Yes (Life-Threatening)
  Sender: BAUSCH AND LOMB
  Company Number: CN-BAUSCH-BL-2025-000644

PATIENT
  Age: 42 Year
  Sex: Male

DRUGS (14)
  1. ACYCLOVIR [Suspect]
     Active Substance: ACYCLOVIR
     Indication: Varicella zoster virus infection
     Route: 065
     Dates: start: 202401
  2. ACYCLOVIR [Suspect]
     Active Substance: ACYCLOVIR
     Indication: Encephalitis
  3. METHYLPREDNISOLONE [Suspect]
     Active Substance: METHYLPREDNISOLONE
     Indication: Varicella zoster virus infection
     Route: 065
     Dates: start: 202401, end: 202401
  4. METHYLPREDNISOLONE [Suspect]
     Active Substance: METHYLPREDNISOLONE
     Indication: Encephalitis
  5. LEVETIRACETAM [Suspect]
     Active Substance: LEVETIRACETAM
     Indication: Varicella zoster virus infection
     Route: 065
     Dates: start: 202401
  6. LEVETIRACETAM [Suspect]
     Active Substance: LEVETIRACETAM
     Indication: Encephalitis
  7. DIAZEPAM [Suspect]
     Active Substance: DIAZEPAM
     Indication: Varicella zoster virus infection
     Route: 042
     Dates: start: 202401
  8. DIAZEPAM [Suspect]
     Active Substance: DIAZEPAM
     Indication: Encephalitis
     Route: 042
  9. SODIUM CHLORIDE [Suspect]
     Active Substance: SODIUM CHLORIDE
     Indication: Varicella zoster virus infection
     Route: 065
     Dates: start: 202401
  10. SODIUM CHLORIDE [Suspect]
     Active Substance: SODIUM CHLORIDE
     Indication: Encephalitis
     Route: 065
  11. ACYCLOVIR [Concomitant]
     Active Substance: ACYCLOVIR
     Indication: Antiviral treatment
     Route: 065
     Dates: start: 202401
  12. FRUCTOSE;GLYCEROL [Concomitant]
     Indication: Headache
     Route: 065
     Dates: start: 202401
  13. MANNITOL [Concomitant]
     Active Substance: MANNITOL
     Indication: Headache
     Route: 065
     Dates: start: 202401
  14. DIAZEPAM [Concomitant]
     Active Substance: DIAZEPAM
     Indication: Sedative therapy
     Route: 042
     Dates: start: 202401

REACTIONS (1)
  - Therapy non-responder [Unknown]

NARRATIVE: CASE EVENT DATE: 20240101
